FAERS Safety Report 4381827-1 (Version None)
Quarter: 2004Q2

REPORT INFORMATION
  Report Type: 
  Country: None (occurrence: None)
  Receive Date: 20040618
  Receipt Date: 20040520
  Transmission Date: 20050107
  Serious: Yes (Hospitalization)
  Sender: FDA-Public Use
  Company Number: MEDI-0001895

PATIENT
  Age: 56 Year
  Sex: Male
  Weight: 115.2136 kg

DRUGS (4)
  1. ETHYOL [Suspect]
     Indication: CHEMOTHERAPY
     Dosage: 200 MG/M2, 3 IN 1 WK, INTRAVENOUS
     Route: 042
  2. CISPLATIN [Concomitant]
  3. FLUOROURACIL [Concomitant]
  4. RADIATION THERAPY [Concomitant]

REACTIONS (6)
  - CHILLS [None]
  - DIARRHOEA [None]
  - MALAISE [None]
  - ORAL PAIN [None]
  - PYREXIA [None]
  - TACHYCARDIA [None]
